FAERS Safety Report 5201621-9 (Version None)
Quarter: 2006Q4

REPORT INFORMATION
  Report Type: 
  Country: None (occurrence: None)
  Receive Date: 20061006
  Receipt Date: 20060703
  Transmission Date: 20070319
  Serious: Yes (Other)
  Sender: FDA-Public Use
  Company Number: 200613664BWH

PATIENT
  Sex: Male

DRUGS (2)
  1. CIPROFLOXACIN [Suspect]
     Indication: DRUG USE FOR UNKNOWN INDICATION
     Dosage: 500 MG, ORAL
     Route: 048
     Dates: start: 20060401
  2. MESTINON [Concomitant]

REACTIONS (3)
  - BLINDNESS [None]
  - DIPLOPIA [None]
  - MYASTHENIA GRAVIS [None]
